FAERS Safety Report 7863500-8 (Version None)
Quarter: 2011Q4

REPORT INFORMATION
  Report Type: 
  Country: None (occurrence: None)
  Receive Date: 20111027
  Receipt Date: 20101206
  Transmission Date: 20120403
  Serious: No
  Sender: FDA-Public Use
  Company Number: US-AMGEN-USASP2010007821

PATIENT
  Sex: Female

DRUGS (2)
  1. ENBREL [Suspect]
     Dates: start: 20101101
  2. ENBREL [Suspect]
     Indication: PSORIASIS
     Dosage: 50 MG, UNK
     Route: 058
     Dates: start: 20101205

REACTIONS (1)
  - INJECTION SITE HAEMATOMA [None]
